FAERS Safety Report 23299044 (Version 1)
Quarter: 2023Q4

REPORT INFORMATION
  Report Type: Spontaneous
  Country: US (occurrence: US)
  Receive Date: 20231215
  Receipt Date: 20231215
  Transmission Date: 20240109
  Serious: No
  Sender: FDA-Public Use
  Company Number: US-ENDO PHARMACEUTICALS INC-2022-006449

PATIENT
  Sex: Male

DRUGS (2)
  1. XIAFLEX [Suspect]
     Active Substance: COLLAGENASE CLOSTRIDIUM HISTOLYTICUM
     Indication: Peyronie^s disease
     Dosage: UNK UNKNOWN, UNKNOWN (CYCLE ONE, INJECTION ONE)
     Route: 051
  2. XIAFLEX [Suspect]
     Active Substance: COLLAGENASE CLOSTRIDIUM HISTOLYTICUM
     Dosage: UNK UNKNOWN, UNKNOWN (CYCLE ONE, INJECTION TWO)
     Route: 051
     Dates: start: 2022

REACTIONS (10)
  - Pain [Unknown]
  - Feeling hot [Unknown]
  - Abdominal pain [Recovering/Resolving]
  - Micturition urgency [Unknown]
  - Muscle tightness [Unknown]
  - Change of bowel habit [Unknown]
  - Connective tissue disorder [Unknown]
  - Testicular pain [Recovering/Resolving]
  - Swelling [Unknown]
  - Ecchymosis [Unknown]
